FAERS Safety Report 8078580-7 (Version None)
Quarter: 2012Q1

REPORT INFORMATION
  Report Type: 
  Country: None (occurrence: None)
  Receive Date: 20120124
  Receipt Date: 20120111
  Transmission Date: 20120608
  Serious: Yes (Disabling)
  Sender: FDA-Public Use
  Company Number: 2012MA000608

PATIENT
  Age: 68 Year
  Sex: Male

DRUGS (7)
  1. CITALOPRAM HYDROBROMIDE [Concomitant]
  2. MIRTAZAPINE [Suspect]
     Dates: start: 20111221
  3. MIRTAZAPINE [Suspect]
     Dates: start: 20111221
  4. SIMVASTATIN [Concomitant]
  5. LOCERYL [Concomitant]
  6. TIMOLOL MALEATE [Concomitant]
  7. ASACOL [Concomitant]

REACTIONS (5)
  - URINARY TRACT DISORDER [None]
  - DIZZINESS [None]
  - MICTURITION URGENCY [None]
  - NOCTURIA [None]
  - MUSCLE TWITCHING [None]
